FAERS Safety Report 9411821 (Version 1)
Quarter: 2013Q2

REPORT INFORMATION
  Report Type: Spontaneous
  Country: US (occurrence: None)
  Receive Date: 20130509
  Receipt Date: 20130509
  Transmission Date: 20140414
  Serious: Yes (Other)
  Sender: FDA-Public Use
  Company Number: 2013SA041297

PATIENT
  Age: 54 Year
  Sex: Female
  Weight: 74.84 kg

DRUGS (5)
  1. PLAVIX [Suspect]
     Indication: PRODUCT USED FOR UNKNOWN INDICATION
     Dates: start: 2011
  2. HYDROXYZINE [Concomitant]
  3. LOPRESSOR [Concomitant]
  4. ZESTRIL [Concomitant]
  5. ZOCOR [Concomitant]

REACTIONS (8)
  - Diarrhoea [None]
  - Drug hypersensitivity [None]
  - Motion sickness [None]
  - Vomiting [None]
  - Muscular weakness [None]
  - Malaise [None]
  - Malaise [None]
  - Asthenia [None]
